FAERS Safety Report 8095582-5 (Version None)
Quarter: 2012Q1

REPORT INFORMATION
  Report Type: 
  Country: None (occurrence: None)
  Receive Date: 20120129
  Receipt Date: 20111215
  Transmission Date: 20120608
  Serious: No
  Sender: FDA-Public Use
  Company Number: US-ABBOTT-11P-163-0883744-00

PATIENT
  Age: 36 Year
  Sex: Female

DRUGS (10)
  1. ALIGN [Concomitant]
     Indication: PRODUCT USED FOR UNKNOWN INDICATION
     Dosage: PROBIOTIC / DAILY
  2. HUMIRA [Suspect]
     Indication: CROHN'S DISEASE
     Dates: start: 20110926
  3. NOVOLOG [Concomitant]
     Indication: DIABETES MELLITUS
     Dosage: INSULIN PUMP
     Dates: start: 20090101
  4. BIOTIN [Concomitant]
     Indication: PRODUCT USED FOR UNKNOWN INDICATION
     Dosage: DAILY
  5. VITAMIN D [Concomitant]
     Indication: PRODUCT USED FOR UNKNOWN INDICATION
     Dosage: 1 TAB=1000MG; 4 TABS DAILY
  6. OMEGA 3-6-9 [Concomitant]
     Indication: PRODUCT USED FOR UNKNOWN INDICATION
  7. PREDNISONE TAB [Suspect]
     Indication: PRODUCT USED FOR UNKNOWN INDICATION
     Dosage: NOT REPORTED
     Dates: end: 20110101
  8. LISINOPRIL [Concomitant]
     Indication: RENAL DISORDER
     Dosage: 1.5 TABLETS=7.5 MG DAILY
     Dates: start: 20010101
  9. NEXIUM [Concomitant]
     Indication: GASTROOESOPHAGEAL REFLUX DISEASE
     Dosage: 40 MG DAILY
     Dates: start: 20010101
  10. SIMVASTATIN [Concomitant]
     Indication: BLOOD CHOLESTEROL
     Dosage: 40 MG DAILY
     Dates: start: 20010101

REACTIONS (2)
  - BLOOD GLUCOSE ABNORMAL [None]
  - ALOPECIA [None]
